FAERS Safety Report 8820699 (Version 1)
Quarter: 2012Q4

REPORT INFORMATION
  Report Type: Report from Study
  Country: JP (occurrence: JP)
  Receive Date: 20121002
  Receipt Date: 20121002
  Transmission Date: 20130627
  Serious: Yes (Other)
  Sender: FDA-Public Use
  Company Number: PHHY2012JP084973

PATIENT
  Age: 45 Year
  Sex: Male
  Weight: 45 kg

DRUGS (11)
  1. FTY 720 [Suspect]
     Indication: MULTIPLE SCLEROSIS
     Dosage: 0.5 mg, daily
     Route: 048
     Dates: start: 20120918, end: 20120921
  2. TERNELIN [Concomitant]
     Route: 048
  3. AVONEX [Concomitant]
     Indication: MULTIPLE SCLEROSIS
     Route: 030
  4. BETAFERON [Concomitant]
     Indication: MULTIPLE SCLEROSIS
     Route: 058
  5. SOL-MELCORT [Concomitant]
     Indication: MULTIPLE SCLEROSIS
     Dosage: UNK UKN, UNK
     Route: 042
     Dates: start: 20120910, end: 20120912
  6. PREDONINE [Concomitant]
     Dosage: UNK UKN, UNK
     Route: 048
     Dates: start: 20120916
  7. METHYCOBAL [Concomitant]
     Route: 048
  8. VEGETAMIN B [Concomitant]
     Dosage: 4 DF, UNK
     Route: 048
  9. RISUMIC [Concomitant]
     Route: 048
  10. CERCINE [Concomitant]
     Route: 048
  11. CALVAN [Concomitant]
     Route: 048

REACTIONS (1)
  - Pyrexia [Not Recovered/Not Resolved]
